FAERS Safety Report 17065337 (Version 1)
Quarter: 2019Q4

REPORT INFORMATION
  Report Type: Spontaneous
  Country: US (occurrence: US)
  Receive Date: 20191122
  Receipt Date: 20191122
  Transmission Date: 20200122
  Serious: No
  Sender: FDA-Public Use
  Company Number: None

PATIENT
  Age: 44 Year
  Sex: Female

DRUGS (2)
  1. IBRANCE [Concomitant]
     Active Substance: PALBOCICLIB
     Dates: start: 20191015, end: 20191111
  2. IBRANCE [Suspect]
     Active Substance: PALBOCICLIB
     Indication: BREAST CANCER
     Route: 048
     Dates: start: 20191015, end: 20191111

REACTIONS (2)
  - Diarrhoea [None]
  - Dehydration [None]

NARRATIVE: CASE EVENT DATE: 20191021
